FAERS Safety Report 8294639-3 (Version None)
Quarter: 2012Q2

REPORT INFORMATION
  Report Type: 
  Country: None (occurrence: None)
  Receive Date: 20120418
  Receipt Date: 20111028
  Transmission Date: 20120825
  Serious: No
  Sender: FDA-Public Use
  Company Number: US-ABBOTT-11P-163-0870438-00

PATIENT
  Sex: Female
  Weight: 48.124 kg

DRUGS (9)
  1. HEPARIN [Concomitant]
     Indication: PRODUCT USED FOR UNKNOWN INDICATION
     Dosage: WITH DIALYSIS
  2. VERAPAMIL [Concomitant]
     Indication: PRODUCT USED FOR UNKNOWN INDICATION
  3. VENOFER [Concomitant]
     Indication: PRODUCT USED FOR UNKNOWN INDICATION
     Dosage: WITH DIALYSIS
  4. EPOGEN [Concomitant]
     Indication: PRODUCT USED FOR UNKNOWN INDICATION
     Dosage: WITH DIALYSIS
  5. ZEMPLAR [Suspect]
     Indication: HYPOPARATHYROIDISM SECONDARY
     Dosage: WITH DIALYSIS
     Route: 042
     Dates: start: 20110201, end: 20110701
  6. LISINOPRIL [Concomitant]
     Indication: PRODUCT USED FOR UNKNOWN INDICATION
  7. SENSIPAR [Concomitant]
     Indication: HYPOPARATHYROIDISM SECONDARY
     Dosage: WITH DIALYSIS
     Dates: start: 20111001
  8. FOSRENOL [Concomitant]
     Indication: PRODUCT USED FOR UNKNOWN INDICATION
  9. ZEMPLAR [Suspect]
     Dosage: WITH DIALYSIS
     Route: 042
     Dates: start: 20111001

REACTIONS (4)
  - NAUSEA [None]
  - BLOOD PARATHYROID HORMONE ABNORMAL [None]
  - DIZZINESS [None]
  - BLOOD PHOSPHORUS INCREASED [None]
